FAERS Safety Report 6625308-0 (Version None)
Quarter: 2010Q1

REPORT INFORMATION
  Report Type: 
  Country: None (occurrence: None)
  Receive Date: 20100310
  Receipt Date: 20090917
  Transmission Date: 20100710
  Serious: No
  Sender: FDA-Public Use
  Company Number: US-BIOGENIDEC-2009BI026238

PATIENT
  Sex: Female

DRUGS (4)
  1. AVONEX [Suspect]
     Indication: MULTIPLE SCLEROSIS
     Route: 030
     Dates: start: 20000101, end: 20070403
  2. KEPPRA [Concomitant]
     Indication: TIC
  3. FLU SHOT [Concomitant]
     Indication: PROPHYLAXIS
  4. PNEUMONIA SHOT [Concomitant]
     Indication: PROPHYLAXIS

REACTIONS (4)
  - ATRIAL FIBRILLATION [None]
  - MEMORY IMPAIRMENT [None]
  - TIC [None]
  - VACCINATION COMPLICATION [None]
